FAERS Safety Report 5199922-6 (Version None)
Quarter: 2007Q1

REPORT INFORMATION
  Report Type: 
  Country: None (occurrence: None)
  Receive Date: 20070103
  Receipt Date: 20061222
  Transmission Date: 20070707
  Serious: Yes (Other)
  Sender: FDA-Public Use
  Company Number: 234260

PATIENT
  Age: 47 Year
  Sex: Female

DRUGS (8)
  1. AVASTIN [Suspect]
     Indication: NEUROENDOCRINE CARCINOMA
     Dosage: 7.5 MG/KG, Q3W,
     Dates: start: 20061204
  2. OXALIPLATIN [Suspect]
     Indication: NEUROENDOCRINE CARCINOMA
     Dosage: 130 MG/M2
  3. CAPECITABINE (CAPECITABINE) [Suspect]
     Indication: NEUROENDOCRINE CARCINOMA
  4. PROGRAF [Concomitant]
  5. RAPAMUNE [Concomitant]
  6. URSODIOL (URSODEOXYCHOLIC ACID) [Concomitant]
  7. PROTONIX [Concomitant]
  8. NALTREXONE (NALTREXONE) [Concomitant]

REACTIONS (1)
  - HYPOKALAEMIA [None]
